FAERS Safety Report 22137060 (Version 1)
Quarter: 2023Q1

REPORT INFORMATION
  Report Type: Spontaneous
  Country: JP (occurrence: JP)
  Receive Date: 20230324
  Receipt Date: 20230324
  Transmission Date: 20230418
  Serious: Yes (Other)
  Sender: FDA-Public Use
  Company Number: JP-BRISTOL-MYERS SQUIBB COMPANY-2023-008671

PATIENT
  Age: 8 Decade
  Sex: Male

DRUGS (1)
  1. ABECMA [Suspect]
     Active Substance: IDECABTAGENE VICLEUCEL
     Indication: Plasma cell myeloma
     Route: 041
     Dates: start: 202212, end: 202212

REACTIONS (4)
  - False positive investigation result [Unknown]
  - Platelet count decreased [Not Recovered/Not Resolved]
  - Pyrexia [Recovered/Resolved]
  - Interleukin level increased [Recovered/Resolved]

NARRATIVE: CASE EVENT DATE: 20221201
